FAERS Safety Report 6970859-2 (Version None)
Quarter: 2010Q3

REPORT INFORMATION
  Report Type: 
  Country: None (occurrence: None)
  Receive Date: 20100908
  Receipt Date: 20100830
  Transmission Date: 20110219
  Serious: Yes (Hospitalization)
  Sender: FDA-Public Use
  Company Number: B0665168A

PATIENT
  Sex: Female
  Weight: 41 kg

DRUGS (29)
  1. LAMICTAL [Suspect]
     Indication: EPILEPSY
     Dosage: 20MG PER DAY
     Route: 048
     Dates: start: 20081229, end: 20090112
  2. LAMICTAL [Suspect]
     Dosage: 30MG PER DAY
     Route: 048
     Dates: start: 20100113, end: 20100125
  3. LAMICTAL [Suspect]
     Dosage: 40MG PER DAY
     Route: 048
     Dates: start: 20090126, end: 20090201
  4. LAMICTAL [Suspect]
     Dosage: 50MG PER DAY
     Route: 048
     Dates: start: 20090202, end: 20090208
  5. LAMICTAL [Suspect]
     Dosage: 60MG PER DAY
     Route: 048
     Dates: start: 20090209, end: 20090212
  6. LAMICTAL [Suspect]
     Dosage: 70MG PER DAY
     Route: 048
     Dates: start: 20090213, end: 20090219
  7. LAMICTAL [Suspect]
     Dosage: 80MG PER DAY
     Route: 048
     Dates: start: 20090220, end: 20090301
  8. LAMICTAL [Suspect]
     Dosage: 100MG PER DAY
     Route: 048
     Dates: start: 20100302, end: 20100313
  9. LAMICTAL [Suspect]
     Dosage: 5MG PER DAY
     Route: 048
     Dates: start: 20090318, end: 20090322
  10. LAMICTAL [Suspect]
     Dosage: 10MG PER DAY
     Route: 048
     Dates: start: 20090323, end: 20090414
  11. LAMICTAL [Suspect]
     Dosage: 20MG PER DAY
     Route: 048
     Dates: start: 20090415, end: 20090421
  12. LAMICTAL [Suspect]
     Dosage: 30MG PER DAY
     Route: 048
     Dates: start: 20090422, end: 20090426
  13. LAMICTAL [Suspect]
     Dosage: 40MG PER DAY
     Route: 048
     Dates: start: 20090427, end: 20090503
  14. LAMICTAL [Suspect]
     Dosage: 50MG PER DAY
     Route: 048
     Dates: start: 20090504, end: 20090511
  15. LAMICTAL [Suspect]
     Dosage: 60MG PER DAY
     Route: 048
     Dates: start: 20090512, end: 20090518
  16. LAMICTAL [Suspect]
     Dosage: 70MG PER DAY
     Route: 048
     Dates: start: 20090519, end: 20090525
  17. LAMICTAL [Suspect]
     Dosage: 80MG PER DAY
     Route: 048
     Dates: start: 20090526, end: 20090601
  18. LAMICTAL [Suspect]
     Dosage: 90MG PER DAY
     Route: 048
     Dates: start: 20090602, end: 20090608
  19. LAMICTAL [Suspect]
     Dosage: 100MG PER DAY
     Route: 048
     Dates: start: 20090609, end: 20090621
  20. LAMICTAL [Suspect]
     Dosage: 110MG PER DAY
     Route: 048
     Dates: start: 20090722, end: 20090804
  21. LAMICTAL [Suspect]
     Dosage: 120MG PER DAY
     Route: 048
     Dates: start: 20090805, end: 20090818
  22. LAMICTAL [Suspect]
     Dosage: 130MG PER DAY
     Route: 048
     Dates: start: 20090819, end: 20090830
  23. LAMICTAL [Suspect]
     Dosage: 110MG PER DAY
     Route: 048
     Dates: start: 20090904, end: 20090917
  24. LAMICTAL [Suspect]
     Dosage: 100MG PER DAY
     Route: 048
     Dates: start: 20090918, end: 20100217
  25. LAMICTAL [Suspect]
     Route: 048
     Dates: start: 20100218, end: 20100513
  26. LAMICTAL [Suspect]
     Dosage: 110MG PER DAY
     Route: 048
     Dates: start: 20100514, end: 20100721
  27. LAMICTAL [Suspect]
     Route: 048
     Dates: start: 20100722
  28. RIVOTRIL [Concomitant]
     Dosage: 1MG PER DAY
     Route: 048
     Dates: start: 20090901
  29. PRIMPERAN TAB [Concomitant]
     Dosage: 15MG PER DAY
     Route: 048
     Dates: start: 20100705

REACTIONS (3)
  - ASTHENIA [None]
  - DIZZINESS [None]
  - NAUSEA [None]
